FAERS Safety Report 4723732-4 (Version None)
Quarter: 2005Q3

REPORT INFORMATION
  Report Type: 
  Country: None (occurrence: None)
  Receive Date: 20050725
  Receipt Date: 20050309
  Transmission Date: 20060218
  Serious: Yes (Death, Hospitalization)
  Sender: FDA-Public Use
  Company Number: EMADSS2003003373

PATIENT
  Sex: Male

DRUGS (5)
  1. TOPAMAX [Suspect]
     Indication: EPILEPSY
     Route: 048
     Dates: end: 20030113
  2. RISPERDAL [Concomitant]
     Indication: ACUTE PSYCHOSIS
     Route: 048
     Dates: start: 20021218, end: 20030411
  3. KEPPRA [Concomitant]
     Indication: EPILEPSY
     Route: 048
     Dates: start: 20030113, end: 20030411
  4. LASIX [Concomitant]
     Route: 048
     Dates: start: 20030113, end: 20030411
  5. UNAT [Concomitant]
     Route: 048
     Dates: start: 20030113, end: 20030411

REACTIONS (3)
  - CIRCULATORY COLLAPSE [None]
  - DELUSION [None]
  - PNEUMONIA [None]
